FAERS Safety Report 8334937-8 (Version None)
Quarter: 2012Q2

REPORT INFORMATION
  Report Type: 
  Country: None (occurrence: None)
  Receive Date: 20120503
  Receipt Date: 20120424
  Transmission Date: 20120825
  Serious: Yes (Other)
  Sender: FDA-Public Use
  Company Number: CA-JNJFOC-20120413895

PATIENT
  Sex: Female
  Weight: 78.7 kg

DRUGS (4)
  1. IMURAN [Concomitant]
  2. MULTI-VITAMINS [Concomitant]
  3. REMICADE [Suspect]
     Indication: CROHN'S DISEASE
     Dosage: 4 INFUSIONS
     Route: 042
     Dates: start: 20120119
  4. PREDNISONE TAB [Concomitant]
     Dates: end: 20120201

REACTIONS (3)
  - HYPOAESTHESIA [None]
  - SENSORY DISTURBANCE [None]
  - PARAESTHESIA [None]
